FAERS Safety Report 5393582-7 (Version None)
Quarter: 2007Q3

REPORT INFORMATION
  Report Type: 
  Country: None (occurrence: None)
  Receive Date: 20070723
  Receipt Date: 20060911
  Transmission Date: 20080115
  Serious: No
  Sender: FDA-Public Use
  Company Number: A0619749A

PATIENT
  Sex: Male

DRUGS (3)
  1. AVANDIA [Suspect]
     Dosage: 8MG TWICE PER DAY
     Route: 048
     Dates: start: 20060101
  2. METFORMIN HCL [Concomitant]
  3. LIPITOR [Concomitant]

REACTIONS (3)
  - MEDICATION ERROR [None]
  - OEDEMA PERIPHERAL [None]
  - PITTING OEDEMA [None]
